FAERS Safety Report 5877284-6 (Version None)
Quarter: 2008Q3

REPORT INFORMATION
  Report Type: 
  Country: None (occurrence: None)
  Receive Date: 20080910
  Receipt Date: 20080905
  Transmission Date: 20090109
  Serious: Yes (Hospitalization)
  Sender: FDA-Public Use
  Company Number: FR-ABBOTT-05P-056-0297953-00

PATIENT
  Sex: Female
  Weight: 94 kg

DRUGS (3)
  1. HUMIRA [Suspect]
     Indication: RHEUMATOID ARTHRITIS
     Route: 058
     Dates: start: 20040311, end: 20050321
  2. PIROXICAM [Concomitant]
     Indication: RHEUMATOID ARTHRITIS
     Dates: start: 20030401
  3. DI-GESIC [Concomitant]
     Indication: RHEUMATOID ARTHRITIS
     Dates: start: 20030401

REACTIONS (2)
  - DEMYELINATION [None]
  - OPTIC NEURITIS [None]
